FAERS Safety Report 21893167 (Version 1)
Quarter: 2023Q1

REPORT INFORMATION
  Report Type: Other
  Country: NG (occurrence: NG)
  Receive Date: 20230121
  Receipt Date: 20230121
  Transmission Date: 20230418
  Serious: Yes (Death, Other)
  Sender: FDA-Public Use
  Company Number: NG-MACLEODS PHARMACEUTICALS US LTD-MAC2023039252

PATIENT

DRUGS (4)
  1. LAMIVUDINE\ZIDOVUDINE [Suspect]
     Active Substance: LAMIVUDINE\ZIDOVUDINE
     Indication: Product used for unknown indication
     Dosage: UNK ONE COURSE, PRIOR TO CONCEPTION, FIRST EXPOSURE TRIMESTER AND ONGOING AT DELIVERY
     Route: 064
     Dates: start: 20211104
  2. DARUNAVIR [Suspect]
     Active Substance: DARUNAVIR
     Indication: Product used for unknown indication
     Dosage: UNK 1 COURSE, PRIOR TO CONCEPTION, FIRST EXPOSURE TRIMESTER(MFG CONTROL NO.: 20220852239
     Route: 064
     Dates: start: 20200326
  3. TIVICAY [Suspect]
     Active Substance: DOLUTEGRAVIR SODIUM
     Indication: Product used for unknown indication
     Dosage: UNKONE COURSE, PRIOR TO CONCEPTION, FIRST EXPOSURE TRIMESTER
     Route: 064
     Dates: start: 20200326, end: 20211103
  4. RITONAVIR [Suspect]
     Active Substance: RITONAVIR
     Indication: Product used for unknown indication
     Dosage: UNK ONE COURSE, PRIOR TO CONCEPTION, FIRST EXPOSURE TRIMESTER AND ONGOING AT DELIVERY
     Route: 064
     Dates: start: 20200326

REACTIONS (2)
  - Death [Fatal]
  - Foetal exposure during pregnancy [Unknown]

NARRATIVE: CASE EVENT DATE: 20220701
